FAERS Safety Report 11118366 (Version 1)
Quarter: 2015Q2

REPORT INFORMATION
  Report Type: Spontaneous
  Country: US (occurrence: US)
  Receive Date: 20150518
  Receipt Date: 20150518
  Transmission Date: 20150821
  Serious: Yes (Other)
  Sender: FDA-Public Use
  Company Number: US-TEVA-562355USA

PATIENT
  Age: 15 Year
  Sex: Male

DRUGS (2)
  1. BACLOFEN. [Suspect]
     Active Substance: BACLOFEN
     Route: 065
  2. SYNCHROMED IIB [Suspect]
     Active Substance: DEVICE
     Indication: QUADRIPARESIS
     Dosage: 220MCG DAILY
     Route: 037

REACTIONS (6)
  - Muscle spasticity [Recovering/Resolving]
  - Device related infection [None]
  - Tachycardia [Recovered/Resolved]
  - Systolic hypertension [Recovered/Resolved]
  - Drug withdrawal syndrome [Recovered/Resolved]
  - Clonus [Recovering/Resolving]
